FAERS Safety Report 10696045 (Version 2)
Quarter: 2015Q1

REPORT INFORMATION
  Report Type: Spontaneous
  Country: US (occurrence: US)
  Receive Date: 20150107
  Receipt Date: 20150126
  Transmission Date: 20150721
  Serious: No
  Sender: FDA-Public Use
  Company Number: US-SHIRE-US201409268

PATIENT
  Age: 15 Year
  Sex: Male
  Weight: 61.68 kg

DRUGS (4)
  1. REMICADE [Concomitant]
     Active Substance: INFLIXIMAB
     Indication: COLITIS ULCERATIVE
     Dosage: 10 MG PER POUND, OTHER (EVERY FEW WEEKS)
     Route: 065
     Dates: start: 201411
  2. LIALDA [Suspect]
     Active Substance: MESALAMINE
     Indication: COLITIS ULCERATIVE
     Dosage: 4.8 G (FOUR 1.2 G TABLETS), 1X/DAY:QD
     Route: 048
     Dates: start: 201412
  3. PREDNISONE. [Concomitant]
     Active Substance: PREDNISONE
     Indication: COLITIS ULCERATIVE
     Dosage: 5 MG, OTHER (EVERY OTHER DAY)
     Route: 048
     Dates: start: 201409
  4. PRILOSEC [Concomitant]
     Active Substance: OMEPRAZOLE MAGNESIUM
     Indication: COLITIS ULCERATIVE
     Dosage: 40 MG, OTHER (DAILY)
     Route: 048
     Dates: start: 201409

REACTIONS (2)
  - No adverse event [Not Recovered/Not Resolved]
  - Product use issue [Not Recovered/Not Resolved]

NARRATIVE: CASE EVENT DATE: 201412
